FAERS Safety Report 13325555 (Version 4)
Quarter: 2017Q4

REPORT INFORMATION
  Report Type: Report from Study
  Country: US (occurrence: US)
  Receive Date: 20170310
  Receipt Date: 20171120
  Transmission Date: 20180320
  Serious: Yes (Hospitalization)
  Sender: FDA-Public Use
  Company Number: US-JNJFOC-20170310911

PATIENT
  Age: 86 Year
  Sex: Female

DRUGS (16)
  1. NACL [Concomitant]
     Active Substance: SODIUM CHLORIDE
  2. NIFEDIPINE. [Concomitant]
     Active Substance: NIFEDIPINE
  3. FERREX [Concomitant]
     Active Substance: FERRIC POLYSACCHARIDE COMPLEX
  4. HYDRALAZINE [Concomitant]
     Active Substance: HYDRALAZINE HYDROCHLORIDE
  5. MODAFINIL. [Concomitant]
     Active Substance: MODAFINIL
  6. QUETIAPINE. [Concomitant]
     Active Substance: QUETIAPINE
  7. PRAVASTATIN. [Concomitant]
     Active Substance: PRAVASTATIN
  8. MONTELUKAST [Concomitant]
     Active Substance: MONTELUKAST SODIUM
  9. COQ10 [Concomitant]
     Active Substance: UBIDECARENONE
  10. CLONIDINE. [Concomitant]
     Active Substance: CLONIDINE
  11. LANSOPRAZOLE. [Concomitant]
     Active Substance: LANSOPRAZOLE
  12. VITAMIN D3 [Concomitant]
     Active Substance: CHOLECALCIFEROL
  13. IMBRUVICA [Suspect]
     Active Substance: IBRUTINIB
     Indication: CHRONIC LYMPHOCYTIC LEUKAEMIA
     Route: 048
     Dates: start: 20161214
  14. SYNTHROID [Concomitant]
     Active Substance: LEVOTHYROXINE SODIUM
  15. PRESERVISION [Concomitant]
     Active Substance: MINERALS\VITAMINS
  16. PROPANOLOL [Concomitant]
     Active Substance: PROPRANOLOL HYDROCHLORIDE

REACTIONS (8)
  - Hyponatraemia [Recovered/Resolved with Sequelae]
  - Tachyphrenia [Recovered/Resolved with Sequelae]
  - Fatigue [Unknown]
  - Decreased appetite [Unknown]
  - Hypertension [Recovering/Resolving]
  - Irritability [Recovered/Resolved]
  - Incontinence [Recovered/Resolved]
  - Dry mouth [Recovered/Resolved]

NARRATIVE: CASE EVENT DATE: 20170111
